FAERS Safety Report 11933638 (Version 2)
Quarter: 2016Q1

REPORT INFORMATION
  Report Type: Spontaneous
  Country: JP (occurrence: JP)
  Receive Date: 20160121
  Receipt Date: 20160218
  Transmission Date: 20160526
  Serious: Yes (Disabling)
  Sender: FDA-Public Use
  Company Number: JP-009507513-1601JPN006429

PATIENT
  Age: 56 Year
  Sex: Female

DRUGS (12)
  1. PARIET [Concomitant]
     Active Substance: RABEPRAZOLE SODIUM
     Dosage: 20 MG, QD
     Route: 048
     Dates: start: 20151015
  2. DIMENHYDRINATE. [Concomitant]
     Active Substance: DIMENHYDRINATE
     Indication: PRODUCT USED FOR UNKNOWN INDICATION
     Dosage: 50 MG, QD
     Route: 048
     Dates: start: 20150903
  3. PARIET [Concomitant]
     Active Substance: RABEPRAZOLE SODIUM
     Indication: PRODUCT USED FOR UNKNOWN INDICATION
     Dosage: 10 MG, QD
     Route: 048
     Dates: start: 20150129, end: 20151014
  4. REFLEX [Suspect]
     Active Substance: MIRTAZAPINE
     Indication: SOMATIC SYMPTOM DISORDER
     Dosage: 15 MG, QD
     Route: 048
     Dates: start: 20151001, end: 20151014
  5. BROMAZEPAM [Concomitant]
     Active Substance: BROMAZEPAM
     Indication: PRODUCT USED FOR UNKNOWN INDICATION
     Dosage: 6 MG, QD
     Route: 048
  6. DOGMATYL [Suspect]
     Active Substance: SULPIRIDE
     Indication: SOMATIC SYMPTOM DISORDER
     Dosage: 450 MG, QD
     Route: 048
     Dates: start: 20151029, end: 20151121
  7. PERPHENAZINE MALEATE [Concomitant]
     Dosage: 4 MG, QD
     Route: 048
     Dates: end: 20151029
  8. REFLEX [Suspect]
     Active Substance: MIRTAZAPINE
     Indication: NAUSEA
     Dosage: 30 MG, QD
     Route: 048
     Dates: start: 20151015, end: 20151120
  9. TEPRENONE [Concomitant]
     Active Substance: TEPRENONE
     Indication: PRODUCT USED FOR UNKNOWN INDICATION
     Dosage: 200 MG, QD
     Route: 048
  10. CONTOMIN [Concomitant]
     Active Substance: CHLORPROMAZINE
     Dosage: 25 MG, QD
     Route: 048
     Dates: start: 20151112
  11. CONTOMIN [Concomitant]
     Active Substance: CHLORPROMAZINE
     Dosage: 25 MG, QD
     Route: 048
     Dates: start: 20150711, end: 20150805
  12. DOGMATYL [Suspect]
     Active Substance: SULPIRIDE
     Indication: NAUSEA

REACTIONS (2)
  - Hepatic function abnormal [Recovered/Resolved]
  - Off label use [Unknown]

NARRATIVE: CASE EVENT DATE: 20151120
